FAERS Safety Report 10053931 (Version 2)
Quarter: 2014Q2

REPORT INFORMATION
  Report Type: Spontaneous
  Country: US (occurrence: US)
  Receive Date: 20140402
  Receipt Date: 20140402
  Transmission Date: 20141212
  Serious: No
  Sender: FDA-Public Use
  Company Number: US-AMGEN-USASP2013091946

PATIENT
  Age: 42 Year
  Sex: Female

DRUGS (8)
  1. ENBREL [Suspect]
     Indication: PRODUCT USED FOR UNKNOWN INDICATION
     Dosage: UNK
     Route: 065
  2. XELJANZ [Suspect]
     Indication: RHEUMATOID ARTHRITIS
     Dosage: 5 MG, BID
     Route: 048
     Dates: start: 20130405, end: 201306
  3. ETODOLAC [Concomitant]
     Indication: PAIN
     Dosage: 400 MG, QD
  4. ETODOLAC [Concomitant]
     Indication: RHEUMATOID ARTHRITIS
  5. LEXAPRO                            /01588501/ [Concomitant]
     Indication: DEPRESSION
     Dosage: 20 MG, UNK
  6. PREDNISONE [Concomitant]
     Indication: PAIN
     Dosage: 5 MG, BID
  7. PREDNISONE [Concomitant]
     Indication: RHEUMATOID ARTHRITIS
  8. NORCO [Concomitant]
     Indication: PAIN
     Dosage: 10/325 MG

REACTIONS (2)
  - Drug ineffective [Unknown]
  - Psoriasis [Recovering/Resolving]
